FAERS Safety Report 9013822 (Version 1)
Quarter: 2013Q1

REPORT INFORMATION
  Report Type: Spontaneous
  Country: US (occurrence: US)
  Receive Date: 20130115
  Receipt Date: 20130115
  Transmission Date: 20140127
  Serious: Yes (Hospitalization)
  Sender: FDA-Public Use
  Company Number: US-BAYER-2013-003347

PATIENT
  Age: 25 Year
  Sex: Female
  Weight: 81.63 kg

DRUGS (10)
  1. YAZ [Suspect]
  2. YASMIN [Suspect]
  3. OCELLA [Suspect]
     Indication: CONTRACEPTION
  4. GIANVI [Suspect]
  5. CEPHALEXIN [Concomitant]
     Dosage: 500 MG, FOUR TIMES A DAY
     Route: 048
  6. OXYCODONE [Concomitant]
     Route: 048
  7. NUCYNTA [Concomitant]
     Dosage: 100 MG, EVERY 4 HOURS AS NEEDED
     Route: 048
  8. PERCOCET [Concomitant]
     Dosage: 5-325 MG EVERY 4 HOURS AS NEEDED
  9. TRAZODONE [Concomitant]
  10. KEFLEX [Concomitant]

REACTIONS (1)
  - Deep vein thrombosis [None]
